FAERS Safety Report 21924820 (Version 1)
Quarter: 2023Q1

REPORT INFORMATION
  Report Type: Spontaneous
  Country: US (occurrence: US)
  Receive Date: 20230130
  Receipt Date: 20230130
  Transmission Date: 20230417
  Serious: No
  Sender: FDA-Public Use
  Company Number: US-SA-SAC20230126000109

PATIENT
  Age: 37 Year
  Sex: Female
  Weight: 143.7 kg

DRUGS (7)
  1. DUPIXENT [Suspect]
     Active Substance: DUPILUMAB
     Indication: Asthma
     Dosage: 300 MG, QOW
     Route: 058
     Dates: start: 202207
  2. DUPIXENT [Suspect]
     Active Substance: DUPILUMAB
     Indication: Dermatitis atopic
  3. FLUCONAZOLE [Concomitant]
     Active Substance: FLUCONAZOLE
  4. TIZANIDINE [Concomitant]
     Active Substance: TIZANIDINE
  5. NORETHINDRONE [Concomitant]
     Active Substance: NORETHINDRONE
  6. NYSTATIN [Concomitant]
     Active Substance: NYSTATIN
  7. OXYCODONE [Concomitant]
     Active Substance: OXYCODONE

REACTIONS (4)
  - Vaginal haemorrhage [Unknown]
  - Illness [Unknown]
  - Appendicectomy [Unknown]
  - Dermatitis atopic [Unknown]

NARRATIVE: CASE EVENT DATE: 20221201
